FAERS Safety Report 7764401-6 (Version None)
Quarter: 2011Q3

REPORT INFORMATION
  Report Type: 
  Country: None (occurrence: None)
  Receive Date: 20110921
  Receipt Date: 20110913
  Transmission Date: 20111222
  Serious: Yes (Hospitalization)
  Sender: FDA-Public Use
  Company Number: FR-B.I. PHARMACEUTICALS,INC./RIDGEFIELD-2011-FF-00799FF

PATIENT
  Age: 74 Year
  Sex: Female

DRUGS (11)
  1. STRUCTUM [Concomitant]
     Route: 048
  2. MICARDIS HCT [Suspect]
     Dosage: 80MG/12.5MG
     Route: 048
     Dates: end: 20110514
  3. DOXYCYCLINE [Suspect]
     Indication: DEVICE RELATED INFECTION
     Route: 048
     Dates: start: 20110419
  4. CELEBREX [Suspect]
     Route: 048
     Dates: end: 20110514
  5. OXACILLIN [Concomitant]
     Indication: DEVICE RELATED INFECTION
     Dates: start: 20110413
  6. ACETAMINOPHEN [Concomitant]
     Route: 048
  7. BACTRIM [Suspect]
     Indication: DEVICE RELATED INFECTION
     Dates: start: 20110413, end: 20110516
  8. CLINDAMYCIN HCL [Suspect]
     Indication: DEVICE RELATED INFECTION
  9. GINKOR FORT [Concomitant]
  10. OFLOXACIN [Suspect]
     Indication: DEVICE RELATED INFECTION
  11. PERINDOPRIL ERBUMINE [Suspect]
     Route: 048
     Dates: end: 20110514

REACTIONS (6)
  - DRUG INTERACTION [None]
  - RENAL FAILURE ACUTE [None]
  - DIARRHOEA [None]
  - RASH [None]
  - FOOD INTOLERANCE [None]
  - DEVICE RELATED INFECTION [None]
